FAERS Safety Report 18932634 (Version 1)
Quarter: 2021Q1

REPORT INFORMATION
  Report Type: Spontaneous
  Country: FR (occurrence: FR)
  Receive Date: 20210224
  Receipt Date: 20210224
  Transmission Date: 20210420
  Serious: Yes (Hospitalization)
  Sender: FDA-Public Use
  Company Number: FR-B.BRAUN MEDICAL INC.-2107248

PATIENT
  Age: 40 Year
  Sex: Male
  Weight: 81 kg

DRUGS (3)
  1. METRONIDAZOLE INJECTION USP (5 MG/ML) IN PAB? PLASTIC CONTAINER (NDA 0 [Suspect]
     Active Substance: METRONIDAZOLE
  2. AZTREONAM. [Concomitant]
     Active Substance: AZTREONAM
  3. AZACTAM [Concomitant]
     Active Substance: AZTREONAM

REACTIONS (2)
  - Hypertransaminasaemia [None]
  - Hepatocellular injury [None]
